FAERS Safety Report 25524878 (Version 3)
Quarter: 2025Q3

REPORT INFORMATION
  Report Type: Spontaneous
  Country: CA (occurrence: CA)
  Receive Date: 20250707
  Receipt Date: 20250904
  Transmission Date: 20251021
  Serious: Yes (Hospitalization)
  Sender: PFIZER
  Company Number: CA-PFIZER INC-202500050870

PATIENT
  Age: 63 Year
  Sex: Male
  Weight: 76.7 kg

DRUGS (3)
  1. IXIFI [Suspect]
     Active Substance: INFLIXIMAB-QBTX
     Indication: Colitis ulcerative
     Route: 042
     Dates: start: 20250505
  2. IXIFI [Suspect]
     Active Substance: INFLIXIMAB-QBTX
     Route: 042
     Dates: start: 20250703
  3. PURINETHOL [Concomitant]
     Active Substance: MERCAPTOPURINE

REACTIONS (3)
  - Balance disorder [Unknown]
  - Dizziness [Unknown]
  - Labyrinthitis [Recovering/Resolving]

NARRATIVE: CASE EVENT DATE: 20250101
